FAERS Safety Report 21932322 (Version 1)
Quarter: 2023Q1

REPORT INFORMATION
  Report Type: Spontaneous
  Country: US (occurrence: US)
  Receive Date: 20230131
  Receipt Date: 20230131
  Transmission Date: 20230417
  Serious: No
  Sender: FDA-Public Use
  Company Number: US-LEO Pharma-348799

PATIENT
  Age: 22 Year
  Sex: Female

DRUGS (8)
  1. ADBRY [Suspect]
     Active Substance: TRALOKINUMAB-LDRM
     Indication: Dermatitis atopic
     Dosage: DOSAGE : 4 INJECTIONS FOR THE INITIAL DOSE
     Route: 058
     Dates: start: 202211
  2. ADBRY [Suspect]
     Active Substance: TRALOKINUMAB-LDRM
     Indication: Dermatitis atopic
     Dosage: DOSAGE : 4 INJECTIONS FOR THE INITIAL DOSE
     Route: 058
     Dates: start: 202211
  3. ADBRY [Suspect]
     Active Substance: TRALOKINUMAB-LDRM
     Indication: Dermatitis atopic
     Dosage: DOSAGE : 2 INJECTIONS
     Route: 058
     Dates: start: 202211
  4. ADBRY [Suspect]
     Active Substance: TRALOKINUMAB-LDRM
     Indication: Dermatitis atopic
     Dosage: DOSAGE : 2 INJECTIONS
     Route: 058
     Dates: start: 202211
  5. ADBRY [Suspect]
     Active Substance: TRALOKINUMAB-LDRM
     Indication: Dermatitis atopic
     Dosage: DOSAGE : 4 INJECTIONS FOR THE INITIAL DOSE
     Route: 058
     Dates: start: 202211
  6. ADBRY [Suspect]
     Active Substance: TRALOKINUMAB-LDRM
     Indication: Dermatitis atopic
     Dosage: DOSAGE : 4 INJECTIONS FOR THE INITIAL DOSE
     Route: 058
     Dates: start: 202211
  7. ADBRY [Suspect]
     Active Substance: TRALOKINUMAB-LDRM
     Indication: Dermatitis atopic
     Dosage: DOSAGE : 2 INJECTIONS
     Route: 058
     Dates: start: 202211
  8. ADBRY [Suspect]
     Active Substance: TRALOKINUMAB-LDRM
     Indication: Dermatitis atopic
     Dosage: DOSAGE : 2 INJECTIONS
     Route: 058
     Dates: start: 202211

REACTIONS (1)
  - Eyelid margin crusting [Unknown]

NARRATIVE: CASE EVENT DATE: 20230111
